FAERS Safety Report 6497293-6 (Version None)
Quarter: 2009Q4

REPORT INFORMATION
  Report Type: 
  Country: None (occurrence: None)
  Receive Date: 20091215
  Receipt Date: 20090818
  Transmission Date: 20100525
  Serious: No
  Sender: FDA-Public Use
  Company Number: A0802829A

PATIENT
  Age: 50 Year
  Sex: Male

DRUGS (5)
  1. AVODART [Suspect]
     Indication: BENIGN PROSTATIC HYPERPLASIA
     Dosage: .5MG PER DAY
     Route: 048
     Dates: start: 20090811
  2. TRILIPIX [Suspect]
     Dosage: 125MG PER DAY
     Route: 048
     Dates: start: 20090101
  3. LIPITOR [Concomitant]
  4. ZETIA [Concomitant]
  5. ASPIRIN [Concomitant]

REACTIONS (3)
  - PENIS DISORDER [None]
  - PRURITUS [None]
  - SKIN CHAPPED [None]
